FAERS Safety Report 8418126-4 (Version None)
Quarter: 2012Q2

REPORT INFORMATION
  Report Type: 
  Country: None (occurrence: None)
  Receive Date: 20120607
  Receipt Date: 20120522
  Transmission Date: 20120825
  Serious: Yes (Life-Threatening, Hospitalization, Other)
  Sender: FDA-Public Use
  Company Number: US-US-EMD SERONO, INC.-7133379

PATIENT
  Sex: Male
  Weight: 51 kg

DRUGS (7)
  1. SYNTHROID [Concomitant]
     Indication: HYPOTHYROIDISM
  2. VISTARIL [Concomitant]
     Indication: PRODUCT USED FOR UNKNOWN INDICATION
  3. ZOFRAN [Concomitant]
     Indication: NAUSEA
  4. GLEEVEC [Suspect]
     Indication: FIBROMATOSIS
     Route: 048
     Dates: start: 20110425, end: 20111202
  5. CORTEF [Concomitant]
     Indication: SECONDARY ADRENOCORTICAL INSUFFICIENCY
     Route: 048
  6. SAIZEN [Suspect]
     Indication: HYPOPITUITARISM
     Dates: start: 20051207, end: 20110411
  7. ATIVAN [Concomitant]
     Indication: PRODUCT USED FOR UNKNOWN INDICATION

REACTIONS (3)
  - ASTROCYTOMA MALIGNANT [None]
  - DESMOID TUMOUR [None]
  - BASAL CELL CARCINOMA [None]
